FAERS Safety Report 9821866 (Version 3)
Quarter: 2014Q1

REPORT INFORMATION
  Report Type: Spontaneous
  Country: US (occurrence: None)
  Receive Date: 20140114
  Receipt Date: 20140318
  Transmission Date: 20141002
  Serious: Yes (Hospitalization, Other)
  Sender: FDA-Public Use
  Company Number: KAD201401-000010

PATIENT
  Age: 22 Year
  Sex: Female
  Weight: 91.62 kg

DRUGS (6)
  1. RIBASPHERE [Suspect]
     Indication: HEPATITIS C
     Dosage: TOTAL DAILY DOSE 1200 MG/DAY, THREE 200 MG, TWICE DAILY
     Dates: start: 201304
  2. PEGASYS [Suspect]
     Indication: HEPATITIS C
     Dosage: INJECTION, 180 MCG/WEEK, SUBCUTANEOUS
     Route: 058
     Dates: start: 201304
  3. LITHIUM (LITHIUM) [Concomitant]
  4. CLONAZEPAM (CLONAZEPAM) (CLONAZEPAM) [Concomitant]
  5. LAMOTRIGINE (LAMOTRIGINE) [Concomitant]
  6. SERTRALINE (SERTALINE) [Concomitant]

REACTIONS (3)
  - Ectopic pregnancy [None]
  - Maternal exposure during pregnancy [None]
  - Treatment noncompliance [None]
